FAERS Safety Report 15605933 (Version 1)
Quarter: 2018Q4

REPORT INFORMATION
  Report Type: Spontaneous
  Country: US (occurrence: US)
  Receive Date: 20181112
  Receipt Date: 20181112
  Transmission Date: 20190205
  Serious: Yes (Hospitalization, Disabling, Other)
  Sender: FDA-Public Use
  Company Number: US-BRISTOL-MYERS SQUIBB COMPANY-BMS-2018-102343

PATIENT
  Age: 63 Year
  Sex: Female

DRUGS (2)
  1. COUMADIN [Suspect]
     Active Substance: WARFARIN SODIUM
     Indication: AORTIC DISSECTION
     Dosage: 10 MG,ON WEDNESDAYS
     Route: 048
  2. COUMADIN [Suspect]
     Active Substance: WARFARIN SODIUM
     Indication: HEART VALVE REPLACEMENT
     Dosage: 7.5 MG, DAILY EXCEPT WEDNESDAYS
     Route: 048
     Dates: start: 199902

REACTIONS (2)
  - Aortic aneurysm [Not Recovered/Not Resolved]
  - Respiratory failure [Unknown]

NARRATIVE: CASE EVENT DATE: 2016
